FAERS Safety Report 24214122 (Version 1)
Quarter: 2024Q3

REPORT INFORMATION
  Report Type: Spontaneous
  Country: US (occurrence: US)
  Receive Date: 20240815
  Receipt Date: 20240815
  Transmission Date: 20241017
  Serious: Yes (Death, Hospitalization, Other)
  Sender: AMGEN
  Company Number: US-AMGEN-USASP2024159793

PATIENT
  Age: 14 Year
  Sex: Male

DRUGS (1)
  1. BLINATUMOMAB [Suspect]
     Active Substance: BLINATUMOMAB
     Indication: B-cell type acute leukaemia
     Dosage: UNK, TWO COURSES
     Route: 065

REACTIONS (10)
  - B-cell type acute leukaemia [Fatal]
  - Lacunar stroke [Unknown]
  - Cerebral microhaemorrhage [Unknown]
  - Central nervous system leukaemia [Unknown]
  - Tumour lysis syndrome [Unknown]
  - Cytokine release syndrome [Unknown]
  - Encephalopathy [Unknown]
  - Paraparesis [Unknown]
  - Immune effector cell-associated neurotoxicity syndrome [Unknown]
  - Dysarthria [Unknown]
